FAERS Safety Report 7377678-6 (Version None)
Quarter: 2011Q1

REPORT INFORMATION
  Report Type: 
  Country: None (occurrence: None)
  Receive Date: 20110328
  Receipt Date: 20110316
  Transmission Date: 20110831
  Serious: Yes (Other)
  Sender: FDA-Public Use
  Company Number: US-JNJFOC-20110307497

PATIENT
  Sex: Female

DRUGS (2)
  1. EXTRA STRENGTH TYLENOL PM [Suspect]
     Indication: PRODUCT USED FOR UNKNOWN INDICATION
  2. ANTI-SEIZURE MEDICATION [Concomitant]
     Indication: CONVULSION

REACTIONS (2)
  - INTENTIONAL OVERDOSE [None]
  - CONVULSION [None]
